FAERS Safety Report 6389412-7 (Version None)
Quarter: 2009Q4

REPORT INFORMATION
  Report Type: 
  Country: None (occurrence: None)
  Receive Date: 20091006
  Receipt Date: 20070920
  Transmission Date: 20100525
  Serious: Yes (Hospitalization, Other)
  Sender: FDA-Public Use
  Company Number: US-ASTRAZENECA-2006UW22434

PATIENT
  Age: 46 Year
  Sex: Female
  Weight: 117.7 kg

DRUGS (7)
  1. SEROQUEL [Suspect]
     Indication: DEPRESSION
     Dosage: 25MG -300MG
     Route: 048
     Dates: start: 20040506
  2. SEROQUEL [Suspect]
     Route: 048
     Dates: end: 20060401
  3. FUROSEMIDE [Concomitant]
     Dates: start: 20050503
  4. GABAPENTIN [Concomitant]
     Dates: start: 20050503
  5. CELEXA [Concomitant]
     Dates: start: 20040517
  6. ULTRACET [Concomitant]
     Indication: BACK PAIN
     Dosage: 1-2 TABLETS THREE TIMES A DAY AS NEEDED
     Dates: start: 20050323
  7. PREDNISONE TAB [Concomitant]
     Dates: start: 20051021

REACTIONS (4)
  - DIABETES MELLITUS [None]
  - DIABETES MELLITUS INADEQUATE CONTROL [None]
  - DIABETIC COMPLICATION [None]
  - DIABETIC GASTROPARESIS [None]
